FAERS Safety Report 8520358-1 (Version None)
Quarter: 2012Q3

REPORT INFORMATION
  Report Type: 
  Country: None (occurrence: None)
  Receive Date: 20120719
  Receipt Date: 20120712
  Transmission Date: 20120928
  Serious: Yes (Hospitalization, Other)
  Sender: FDA-Public Use
  Company Number: JP-MPIJNJ-2012-02693

PATIENT

DRUGS (15)
  1. DEXAMETHASONE [Suspect]
     Indication: MULTIPLE MYELOMA
     Dosage: 20 MG, QD
     Route: 048
     Dates: start: 20110719, end: 20120121
  2. HACHIAZULE                         /00523101/ [Concomitant]
     Dosage: UNK
     Route: 049
     Dates: start: 20110708, end: 20110816
  3. VELCADE [Suspect]
     Indication: MULTIPLE MYELOMA
     Dosage: 1.3 MG/M2, UNK
     Route: 042
     Dates: start: 20110719, end: 20120120
  4. VELCADE [Suspect]
     Dosage: 1.3 MG/M2, UNK
     Route: 042
     Dates: start: 20120131, end: 20120626
  5. CATLEP [Concomitant]
     Indication: BACK PAIN
     Dosage: UNK
     Route: 061
  6. FLUMARIN                           /00963302/ [Concomitant]
     Dosage: 2.0 MG, UNK
     Route: 042
     Dates: start: 20120416, end: 20120417
  7. FLOMAX [Concomitant]
     Dosage: 100 MG, TID
     Route: 048
     Dates: start: 20120420, end: 20120507
  8. DECADRON [Suspect]
     Indication: MULTIPLE MYELOMA
     Dosage: 2 MG, QD
     Route: 048
     Dates: start: 20120131, end: 20120627
  9. GASTER                             /00706001/ [Concomitant]
     Indication: GASTRITIS ATROPHIC
     Dosage: 10 MG, QD
     Route: 048
  10. GASTER                             /00706001/ [Concomitant]
     Dosage: 20 UNK, UNK
     Route: 048
     Dates: start: 20110809
  11. HACHIAZULE                         /00523101/ [Concomitant]
     Indication: INFECTION PROPHYLAXIS
     Dosage: UNK
     Route: 049
     Dates: end: 20110708
  12. REBAMIPIDE [Concomitant]
     Indication: GASTRITIS ATROPHIC
     Dosage: UNK
     Route: 048
     Dates: start: 20110809
  13. DEXAMETHASONE [Suspect]
     Dosage: 8 MG, QD
     Route: 048
     Dates: start: 20120131, end: 20120627
  14. HACHIAZULE                         /00523101/ [Concomitant]
     Dosage: UNK
     Route: 049
     Dates: start: 20110816
  15. CLARITHROMYCIN [Concomitant]
     Dosage: 200 MG, BID
     Route: 048
     Dates: start: 20120510, end: 20120603

REACTIONS (2)
  - PERIODONTITIS [None]
  - COLON CANCER [None]
